FAERS Safety Report 25067933 (Version 1)
Quarter: 2025Q1

REPORT INFORMATION
  Report Type: Spontaneous
  Country: US (occurrence: US)
  Receive Date: 20250312
  Receipt Date: 20250312
  Transmission Date: 20250408
  Serious: No
  Sender: MYLAN
  Company Number: US-MYLANLABS-2025M1018677

PATIENT
  Sex: Female

DRUGS (8)
  1. NORVASC [Suspect]
     Active Substance: AMLODIPINE BESYLATE
     Indication: Hypertension
  2. PREGABALIN [Concomitant]
     Active Substance: PREGABALIN
  3. OXYCODONE [Concomitant]
     Active Substance: OXYCODONE
  4. ACETAMINOPHEN [Concomitant]
     Active Substance: ACETAMINOPHEN
  5. OMEPRAZOLE [Concomitant]
     Active Substance: OMEPRAZOLE
  6. METFORMIN [Concomitant]
     Active Substance: METFORMIN HYDROCHLORIDE
  7. ROSUVASTATIN [Concomitant]
     Active Substance: ROSUVASTATIN
  8. RITUXAN [Concomitant]
     Active Substance: RITUXIMAB

REACTIONS (2)
  - Lip swelling [Unknown]
  - Swollen tongue [Unknown]
